FAERS Safety Report 6601459-1 (Version None)
Quarter: 2010Q1

REPORT INFORMATION
  Report Type: 
  Country: None (occurrence: None)
  Receive Date: 20100225
  Receipt Date: 20100217
  Transmission Date: 20100710
  Serious: Yes (Other)
  Sender: FDA-Public Use
  Company Number: US-SANOFI-AVENTIS-2010SA003437

PATIENT
  Age: 66 Year
  Sex: Male
  Weight: 104.32 kg

DRUGS (2)
  1. LANTUS [Suspect]
     Indication: TYPE 2 DIABETES MELLITUS
     Dosage: 15-18 UNITS
     Route: 058
  2. OPTICLICK [Suspect]

REACTIONS (2)
  - BLINDNESS [None]
  - RETINAL ISCHAEMIA [None]
